FAERS Safety Report 15552548 (Version 30)
Quarter: 2022Q3

REPORT INFORMATION
  Report Type: Spontaneous
  Country: GB (occurrence: GB)
  Receive Date: 20181025
  Receipt Date: 20220706
  Transmission Date: 20221026
  Serious: Yes (Death, Life-Threatening, Hospitalization, Disabling, Other)
  Sender: FDA-Public Use
  Company Number: GB-MYLANLABS-2018M1073364

PATIENT
  Age: 47 Year
  Sex: Female

DRUGS (25)
  1. HUMALOG MIX50/50 [Suspect]
     Active Substance: INSULIN LISPRO
     Indication: Diabetes mellitus
     Dosage: 360 INTERNATIONAL UNIT, DAILY
     Route: 048
     Dates: end: 20180928
  2. HUMALOG MIX50/50 [Suspect]
     Active Substance: INSULIN LISPRO
     Dosage: 60 INTERNATIONAL UNIT, TID
     Route: 048
     Dates: end: 20180928
  3. HUMALOG MIX50/50 [Suspect]
     Active Substance: INSULIN LISPRO
     Dosage: 120 INTERNATIONAL UNIT, TID
     Route: 048
     Dates: end: 20180928
  4. HUMALOG MIX50/50 [Suspect]
     Active Substance: INSULIN LISPRO
     Dosage: 360 INTERNATIONAL UNIT, TID
     Route: 048
     Dates: end: 20180928
  5. HUMALOG MIX50/50 [Suspect]
     Active Substance: INSULIN LISPRO
     Dosage: 180 INTERNATIONAL UNIT, TID
     Route: 048
     Dates: end: 20180928
  6. EZETIMIBE [Suspect]
     Active Substance: EZETIMIBE
     Indication: Blood cholesterol increased
     Dosage: 10 MG, EACH MORNING
     Route: 048
     Dates: end: 20180928
  7. PRAVASTATIN [Suspect]
     Active Substance: PRAVASTATIN
     Indication: Blood cholesterol increased
     Dosage: 40 MG, DAILY QHS
     Route: 048
  8. PRAVASTATIN [Suspect]
     Active Substance: PRAVASTATIN
     Indication: Depression
     Dosage: 40 MG, DAILY QHS
     Route: 048
  9. PRAVASTATIN [Suspect]
     Active Substance: PRAVASTATIN
     Dosage: 40 MG, DAILY
     Route: 048
  10. PRAVASTATIN [Suspect]
     Active Substance: PRAVASTATIN
     Dosage: 40 MILLIGRAM, QD (40 MG, PM, QHS, UNIT DOSE: 40 MG)
     Route: 048
  11. PRAVASTATIN [Suspect]
     Active Substance: PRAVASTATIN
     Dosage: 40 MILLIGRAM, QD (40 MG, PM, QHS)
     Route: 048
  12. PRAVASTATIN [Suspect]
     Active Substance: PRAVASTATIN
     Dosage: 40 MILLIGRAM (40 MG, PM, QHS)
     Route: 048
  13. PRAVASTATIN [Suspect]
     Active Substance: PRAVASTATIN
     Dosage: 50 MG, DAILY
     Route: 048
     Dates: start: 201709
  14. LANSOPRAZOLE [Suspect]
     Active Substance: LANSOPRAZOLE
     Indication: Gastrooesophageal reflux disease
     Dosage: 30 MG, DAILY AM
     Route: 065
     Dates: end: 20180928
  15. LANSOPRAZOLE [Suspect]
     Active Substance: LANSOPRAZOLE
     Indication: Blood cholesterol increased
     Dosage: 40 MG, DAILY
     Route: 048
  16. FELODIPINE [Suspect]
     Active Substance: FELODIPINE
     Indication: Hypertension
     Dosage: 10 MG, DAILY
     Route: 048
     Dates: end: 20180928
  17. LOSARTAN [Suspect]
     Active Substance: LOSARTAN
     Indication: Hypertension
     Dosage: 100 MG, DAILY
     Route: 048
     Dates: end: 20180928
  18. LOSARTAN [Suspect]
     Active Substance: LOSARTAN
     Indication: Schizophrenia
     Dosage: 200 MG, DAILY
     Route: 048
     Dates: start: 20170317, end: 20180928
  19. CLOZARIL [Suspect]
     Active Substance: CLOZAPINE
     Indication: Schizophrenia
     Dosage: 200 MG, DAILY PM
     Route: 048
     Dates: start: 20170317, end: 20180928
  20. CLOZARIL [Suspect]
     Active Substance: CLOZAPINE
     Indication: Blood cholesterol increased
     Dosage: 10 MG, DAILY
     Route: 048
     Dates: end: 20180928
  21. SERTRALINE [Suspect]
     Active Substance: SERTRALINE HYDROCHLORIDE
     Indication: Depression
     Dosage: 50 MG, DAILY
     Route: 048
     Dates: start: 201709, end: 20180928
  22. AMLODIPINE [Suspect]
     Active Substance: AMLODIPINE BESYLATE
     Indication: Hypertension
     Dosage: 100 MG, DAILY
     Route: 048
     Dates: start: 20180928, end: 20180928
  23. CLOZAPINE [Suspect]
     Active Substance: CLOZAPINE
     Indication: Product used for unknown indication
     Dosage: 200 MG, DAILY
     Route: 048
     Dates: start: 20170317, end: 20180928
  24. CLOZAPINE [Suspect]
     Active Substance: CLOZAPINE
     Indication: Schizophrenia
     Dosage: 10 MG, QID
     Route: 048
  25. CLOZAPINE [Suspect]
     Active Substance: CLOZAPINE
     Dosage: 100 MG, DAILY
     Route: 048
     Dates: end: 20180928

REACTIONS (4)
  - Pneumonia [Fatal]
  - Multiple organ dysfunction syndrome [Fatal]
  - Loss of consciousness [Fatal]
  - Incorrect route of product administration [Fatal]

NARRATIVE: CASE EVENT DATE: 20180101
